FAERS Safety Report 17138635 (Version 1)
Quarter: 2019Q4

REPORT INFORMATION
  Report Type: Spontaneous
  Country: US (occurrence: US)
  Receive Date: 20191211
  Receipt Date: 20191211
  Transmission Date: 20200122
  Serious: No
  Sender: FDA-Public Use
  Company Number: US-UCBSA-2016026963

PATIENT
  Age: 19 Year
  Sex: Male

DRUGS (6)
  1. VIMPAT [Suspect]
     Active Substance: LACOSAMIDE
     Dosage: TITRATED UP TO 400MG (100MG TABLETS STRENGTH) PER DAY
  2. VIMPAT [Suspect]
     Active Substance: LACOSAMIDE
     Indication: SEIZURE
     Dosage: UNK
  3. VIMPAT [Suspect]
     Active Substance: LACOSAMIDE
     Dosage: INCREASED 200MG QAM AND 300MG QPM
  4. VIMPAT [Suspect]
     Active Substance: LACOSAMIDE
     Dosage: TITRATION UP TO 200MG (100 MG STRENGTH) BID
  5. VIMPAT [Suspect]
     Active Substance: LACOSAMIDE
     Dosage: 400 MG
  6. VIMPAT [Suspect]
     Active Substance: LACOSAMIDE
     Dosage: CHANGED TO 200MG BID (200 MG TABLET STRENGTH)

REACTIONS (3)
  - Overdose [Unknown]
  - Off label use [Unknown]
  - Drug intolerance [Unknown]
